FAERS Safety Report 10357512 (Version 1)
Quarter: 2014Q3

REPORT INFORMATION
  Report Type: Spontaneous
  Country: US (occurrence: None)
  Receive Date: 20140730
  Receipt Date: 20140730
  Transmission Date: 20150326
  Serious: Yes (Disabling, Other)
  Sender: FDA-Public Use
  Company Number: None

PATIENT
  Age: 80 Year
  Sex: Female
  Weight: 74.84 kg

DRUGS (4)
  1. HYDROCHLOROTHIAZIDE. [Concomitant]
     Active Substance: HYDROCHLOROTHIAZIDE
  2. SYNTHROID [Concomitant]
     Active Substance: LEVOTHYROXINE SODIUM
  3. ONE A DAY WOMENS VITAMINS [Concomitant]
  4. LEVOFLOXACIN [Suspect]
     Active Substance: LEVOFLOXACIN
     Indication: NASOPHARYNGITIS
     Dosage: 7 TABS 1 DAYLY BY MOUTH
     Route: 048
     Dates: start: 20130814, end: 20130821

REACTIONS (1)
  - Neuropathy peripheral [None]

NARRATIVE: CASE EVENT DATE: 20130814
